FAERS Safety Report 4973214-X (Version None)
Quarter: 2006Q2

REPORT INFORMATION
  Report Type: 
  Country: None (occurrence: None)
  Receive Date: 20060414
  Receipt Date: 20051031
  Transmission Date: 20061013
  Serious: Yes (Hospitalization, Other)
  Sender: FDA-Public Use
  Company Number: US-MERCK-0511USA00086

PATIENT
  Age: 48 Year
  Sex: Female
  Weight: 84 kg

DRUGS (22)
  1. ACTOS [Concomitant]
     Indication: DIABETES MELLITUS
     Route: 048
  2. VIOXX [Suspect]
     Indication: FIBROMYALGIA
     Route: 048
     Dates: start: 19990923, end: 20010305
  3. VIOXX [Suspect]
     Route: 048
     Dates: start: 20010306, end: 20010801
  4. PRILOSEC [Concomitant]
     Indication: GASTROOESOPHAGEAL REFLUX DISEASE
     Route: 048
  5. PREMARIN [Concomitant]
     Route: 065
     Dates: start: 19750101, end: 20020101
  6. VOLMA [Concomitant]
     Indication: ASTHMA
     Route: 065
  7. PREDNISONE [Concomitant]
     Indication: ASTHMA
     Route: 065
  8. PREDNISONE [Concomitant]
     Indication: BRONCHITIS
     Route: 065
  9. TERAZOL 7 [Concomitant]
     Route: 065
  10. GLUCOPHAGE [Concomitant]
     Route: 065
  11. DIFLUCAN [Concomitant]
     Indication: FUNGAL INFECTION
     Route: 048
  12. SINGULAIR [Concomitant]
     Indication: ASTHMA
     Route: 048
  13. LEVAQUIN [Concomitant]
     Indication: BRONCHITIS
     Route: 048
  14. LEVAQUIN [Concomitant]
     Indication: PNEUMONIA
     Route: 048
  15. HUMALOG [Concomitant]
     Indication: DIABETES MELLITUS
     Route: 065
  16. CAPTOPRIL [Concomitant]
     Route: 048
  17. WELLBUTRIN [Concomitant]
     Indication: DEPRESSION
     Route: 048
  18. EFFEXOR [Concomitant]
     Indication: DEPRESSION
     Route: 065
  19. IMITREX [Concomitant]
     Indication: HEADACHE
     Route: 065
  20. ALPRAZOLAM [Concomitant]
     Indication: ANXIETY
     Route: 048
  21. AUGMENTIN '125' [Concomitant]
     Indication: BRONCHITIS
     Route: 065
  22. AUGMENTIN '125' [Concomitant]
     Indication: PNEUMONIA
     Route: 065

REACTIONS (35)
  - ANXIETY [None]
  - BRAIN MASS [None]
  - CARDIAC MURMUR [None]
  - CARPAL TUNNEL SYNDROME [None]
  - CELLULITIS [None]
  - CEREBROVASCULAR ACCIDENT [None]
  - CHEST PAIN [None]
  - DEPRESSION [None]
  - DIABETIC NEUROPATHY [None]
  - DIABETIC ULCER [None]
  - FIBROMYALGIA [None]
  - FUNGAL INFECTION [None]
  - GASTROOESOPHAGEAL REFLUX DISEASE [None]
  - GLAUCOMA [None]
  - HEADACHE [None]
  - HYPERCHOLESTEROLAEMIA [None]
  - HYPERTENSION [None]
  - HYPERTRIGLYCERIDAEMIA [None]
  - HYPONATRAEMIA [None]
  - INTRACRANIAL HYPOTENSION [None]
  - IRRITABLE BOWEL SYNDROME [None]
  - MELANOCYTIC NAEVUS [None]
  - MENINGOCELE [None]
  - MYOCARDIAL INFARCTION [None]
  - OEDEMA PERIPHERAL [None]
  - PAIN [None]
  - PALPITATIONS [None]
  - PNEUMONIA [None]
  - RASH [None]
  - SECRETION DISCHARGE [None]
  - SINUSITIS [None]
  - TRANSIENT ISCHAEMIC ATTACK [None]
  - VERTIGO [None]
  - VOMITING [None]
  - WEIGHT DECREASED [None]
